FAERS Safety Report 7761737-X (Version None)
Quarter: 2011Q3

REPORT INFORMATION
  Report Type: 
  Country: None (occurrence: None)
  Receive Date: 20110920
  Receipt Date: 20110912
  Transmission Date: 20111222
  Serious: Yes (Hospitalization, Other)
  Sender: FDA-Public Use
  Company Number: PHHY2011FR81159

PATIENT
  Age: 85 Year
  Sex: Male

DRUGS (3)
  1. FERROUS SULFATE TAB [Concomitant]
     Dosage: UNK UKN, UNK
  2. ACETAMINOPHEN [Concomitant]
     Dosage: UNK UKN, UNK
  3. VOLTAREN [Suspect]
     Indication: ARTHRALGIA
     Dosage: 2 DF, QD
     Route: 048
     Dates: start: 20070101, end: 20110808

REACTIONS (5)
  - CARDIAC DISORDER [None]
  - OVERDOSE [None]
  - ANAEMIA [None]
  - RESPIRATORY DISORDER [None]
  - HAEMORRHAGE URINARY TRACT [None]
